FAERS Safety Report 10247756 (Version 1)
Quarter: 2014Q2

REPORT INFORMATION
  Report Type: Spontaneous
  Country: CA (occurrence: CA)
  Receive Date: 20140619
  Receipt Date: 20140619
  Transmission Date: 20141212
  Serious: Yes (Life-Threatening, Hospitalization)
  Sender: FDA-Public Use
  Company Number: PHHY2014CA075714

PATIENT
  Age: 75 Year
  Sex: Male
  Weight: 108 kg

DRUGS (8)
  1. DIOVAN [Suspect]
     Dosage: 1 DF, (40 MG) BID
  2. CLOPIDOGREL [Suspect]
     Dosage: 1 DF, (300 MG) DAILY
     Route: 048
  3. ASA [Concomitant]
     Dosage: UNK UKN, UNK
  4. BISOPROLOL [Concomitant]
     Dosage: UNK UKN, UNK
  5. CRESTOR [Concomitant]
     Dosage: UNK UKN, UNK
  6. LASIX [Concomitant]
     Dosage: UNK UKN, UNK
  7. SPIRIVA [Concomitant]
     Dosage: UNK UKN, UNK
  8. XARELTO [Concomitant]
     Dosage: UNK UKN, UNK

REACTIONS (2)
  - Dyspnoea [Recovered/Resolved]
  - Swollen tongue [Recovered/Resolved]
